FAERS Safety Report 9343314 (Version 2)
Quarter: 2014Q1

REPORT INFORMATION
  Report Type: Spontaneous
  Country: US (occurrence: US)
  Receive Date: 20130612
  Receipt Date: 20140310
  Transmission Date: 20141002
  Serious: Yes (Hospitalization)
  Sender: FDA-Public Use
  Company Number: US-B.I. PHARMACEUTICALS,INC./RIDGEFIELD-2013-BI-16259BP

PATIENT
  Age: 89 Year
  Sex: Female
  Weight: 53.52 kg

DRUGS (6)
  1. PRADAXA [Suspect]
     Indication: ATRIAL FIBRILLATION
     Route: 065
     Dates: start: 20120419, end: 20120712
  2. PRADAXA [Suspect]
     Dosage: 150 MG
     Route: 048
     Dates: start: 20120712, end: 20120826
  3. LISINOPRIL [Concomitant]
     Dosage: 20 MG
     Route: 048
  4. ACETAMINOPHEN [Concomitant]
     Route: 048
  5. FUROSEMIDE [Concomitant]
     Dosage: 40 MG
     Route: 048
  6. POTASSIUM CHLORIDE [Concomitant]
     Dosage: 20 MG
     Route: 048

REACTIONS (6)
  - Gastrointestinal haemorrhage [Unknown]
  - Coagulopathy [Recovered/Resolved]
  - Anaemia [Unknown]
  - Anaemia [Unknown]
  - Abdominal pain [Unknown]
  - Vomiting [Unknown]
